FAERS Safety Report 16010998 (Version 1)
Quarter: 2019Q1

REPORT INFORMATION
  Report Type: Spontaneous
  Country: DE (occurrence: DE)
  Receive Date: 20190227
  Receipt Date: 20190227
  Transmission Date: 20190418
  Serious: Yes (Death, Congenital Anomaly)
  Sender: FDA-Public Use
  Company Number: DE-ACCORD-109190

PATIENT
  Sex: Male

DRUGS (7)
  1. PAROXETINE. [Suspect]
     Active Substance: PAROXETINE
     Dosage: 30 MG/D
     Route: 064
     Dates: start: 20171002, end: 20171103
  2. CANDESARTAN. [Suspect]
     Active Substance: CANDESARTAN
     Dosage: 16 MG/D
     Route: 064
     Dates: start: 20171002, end: 20171103
  3. NEPRESOL (DIHYDRALAZINE) [Suspect]
     Active Substance: DIHYDRALAZINE
     Dosage: 25MG/D
     Route: 064
     Dates: start: 20171103, end: 20171223
  4. L-THYROXINE [Concomitant]
     Active Substance: LEVOTHYROXINE
     Route: 064
     Dates: start: 20171002, end: 20171223
  5. LEVETIRACETAM. [Suspect]
     Active Substance: LEVETIRACETAM
     Dosage: 1500 MG/ DAY
     Route: 064
     Dates: start: 20171002, end: 20171223
  6. CYTOTEC [Concomitant]
     Active Substance: MISOPROSTOL
     Route: 064
     Dates: start: 20171218, end: 20171223
  7. ESCITALOPRAM [Suspect]
     Active Substance: ESCITALOPRAM OXALATE
     Route: 064
     Dates: start: 20171103, end: 20171223

REACTIONS (4)
  - Maternal drugs affecting foetus [None]
  - Foetal exposure during pregnancy [Unknown]
  - Anencephaly [Fatal]
  - Congenital anomaly [None]
